FAERS Safety Report 17796110 (Version 1)
Quarter: 2020Q2

REPORT INFORMATION
  Report Type: Spontaneous
  Country: US (occurrence: US)
  Receive Date: 20200517
  Receipt Date: 20200517
  Transmission Date: 20200714
  Serious: No
  Sender: FDA-Public Use
  Company Number: US-TEVA-2020-US-1238066

PATIENT
  Sex: Female

DRUGS (1)
  1. AJOVY [Suspect]
     Active Substance: FREMANEZUMAB-VFRM
     Dosage: MONTHLY INJECTION

REACTIONS (4)
  - Pyrexia [Unknown]
  - Arthralgia [Unknown]
  - Injection site pruritus [Unknown]
  - Adverse event [Unknown]
